FAERS Safety Report 17770513 (Version 1)
Quarter: 2020Q2

REPORT INFORMATION
  Report Type: Spontaneous
  Country: FR (occurrence: FR)
  Receive Date: 20200512
  Receipt Date: 20200512
  Transmission Date: 20200714
  Serious: Yes (Other)
  Sender: FDA-Public Use
  Company Number: FR-BRISTOL-MYERS SQUIBB COMPANY-BMS-2020-037253

PATIENT
  Age: 69 Year
  Sex: Male
  Weight: 54 kg

DRUGS (1)
  1. OPDIVO [Suspect]
     Active Substance: NIVOLUMAB
     Indication: LUNG SQUAMOUS CELL CARCINOMA METASTATIC
     Dosage: 240 MILLIGRAM
     Route: 041
     Dates: start: 20161206

REACTIONS (1)
  - Cholangitis sclerosing [Unknown]

NARRATIVE: CASE EVENT DATE: 20190315
